FAERS Safety Report 10775002 (Version 1)
Quarter: 2015Q1

REPORT INFORMATION
  Report Type: Spontaneous
  Country: US (occurrence: US)
  Receive Date: 20150209
  Receipt Date: 20150209
  Transmission Date: 20150721
  Serious: Yes (Other)
  Sender: FDA-Public Use
  Company Number: US-RANBAXY-2015US-92734

PATIENT
  Age: 65 Year
  Sex: Female

DRUGS (2)
  1. OLANZAPIN [Suspect]
     Active Substance: OLANZAPINE
     Indication: PSYCHOTIC DISORDER
     Dosage: UNK
     Route: 065
  2. TOPIRAMATE. [Suspect]
     Active Substance: TOPIRAMATE
     Indication: HALLUCINATION
     Dosage: 25 MG, DAILY
     Route: 065

REACTIONS (5)
  - Dystonia [Unknown]
  - Tremor [Unknown]
  - Weight decreased [Unknown]
  - Myoclonus [Unknown]
  - Decreased appetite [Unknown]
